FAERS Safety Report 13610030 (Version 1)
Quarter: 2017Q2

REPORT INFORMATION
  Report Type: Spontaneous
  Country: CA (occurrence: CA)
  Receive Date: 20170603
  Receipt Date: 20170603
  Transmission Date: 20170830
  Serious: Yes (Hospitalization)
  Sender: FDA-Public Use
  Company Number: CA-TEVA-773908ACC

PATIENT
  Age: 11 Year
  Sex: Female
  Weight: 57 kg

DRUGS (8)
  1. METHOTREXATE INJECTION, USP [Concomitant]
     Active Substance: METHOTREXATE
  2. GABAPENTIN. [Suspect]
     Active Substance: GABAPENTIN
     Indication: NEUROPATHY PERIPHERAL
  3. MERCAPTOPURINE. [Concomitant]
     Active Substance: MERCAPTOPURINE
  4. DOXORUBICIN HYDROCHLORIDE INJECTION [Concomitant]
     Active Substance: DOXORUBICIN HYDROCHLORIDE
  5. VINCRISTINE SULFATE. [Concomitant]
     Active Substance: VINCRISTINE SULFATE
  6. ASPARAGINASE (ERWINIA) [Concomitant]
  7. CYTARABINE INJECTION [Concomitant]
     Active Substance: CYTARABINE
  8. METHOTREXATE INJECTION, USP [Concomitant]
     Active Substance: METHOTREXATE

REACTIONS (3)
  - Vision blurred [Unknown]
  - Balance disorder [Unknown]
  - Weight increased [Unknown]
